FAERS Safety Report 4532799-8 (Version None)
Quarter: 2004Q4

REPORT INFORMATION
  Report Type: 
  Country: None (occurrence: None)
  Receive Date: 20041220
  Receipt Date: 20041206
  Transmission Date: 20050328
  Serious: Yes (Other)
  Sender: FDA-Public Use
  Company Number: 2004105148

PATIENT
  Sex: Female
  Weight: 72.5755 kg

DRUGS (11)
  1. NEOSPORIN [Suspect]
     Indication: SKIN DISORDER
     Dosage: AS NEEDED, TOPICAL
     Route: 061
  2. NEOSPORIN [Suspect]
  3. ASCORBIC ACID [Concomitant]
  4. ALENDRONATE SODIUM [Concomitant]
  5. ANASTROZOLE [Concomitant]
  6. ACETYLSALICYLIC ACID [Concomitant]
  7. WARFARIN SODIUM [Concomitant]
  8. DRUG, UNSPECIFIED [Concomitant]
  9. VENLAFAXINE HCL [Concomitant]
  10. ESOMEPRAZOLE [Concomitant]
  11. LEVOTHYROXINE SODIUM [Concomitant]

REACTIONS (3)
  - CARCINOMA [None]
  - CATARACT OPERATION [None]
  - KNEE ARTHROPLASTY [None]
